FAERS Safety Report 16032180 (Version 2)
Quarter: 2019Q1

REPORT INFORMATION
  Report Type: Spontaneous
  Country: JP (occurrence: JP)
  Receive Date: 20190304
  Receipt Date: 20190312
  Transmission Date: 20190418
  Serious: Yes (Other)
  Sender: FDA-Public Use
  Company Number: JP-BAUSCH-BL-2019-006443

PATIENT
  Age: 5 Decade
  Sex: Male

DRUGS (2)
  1. LUMICEF [Suspect]
     Active Substance: BRODALUMAB
     Indication: PSORIASIS
     Dosage: SYRINGE?DURATION: 10 MONTHS 14 DAYS.
     Route: 058
     Dates: start: 20171225, end: 20181107
  2. LUMICEF [Suspect]
     Active Substance: BRODALUMAB
     Dosage: SYRINGE
     Route: 058

REACTIONS (1)
  - Cerebral haemorrhage [Recovered/Resolved with Sequelae]

NARRATIVE: CASE EVENT DATE: 20181114
